FAERS Safety Report 10044530 (Version 1)
Quarter: 2014Q1

REPORT INFORMATION
  Report Type: Spontaneous
  Country: US (occurrence: None)
  Receive Date: 20140306
  Receipt Date: 20140306
  Transmission Date: 20141002
  Serious: Yes (Other)
  Sender: FDA-Public Use
  Company Number: 163-21880-13070480

PATIENT
  Age: 48 Year
  Sex: Male

DRUGS (4)
  1. REVLIMID (LENALIDOMIDE) (25 MILLIGRAM CAPSULES) [Suspect]
     Indication: PLASMA CELL MYELOMA
     Dosage: 25MG, 1 IN 1D, PO
     Route: 048
     Dates: start: 201305
  2. NEXIUM DR (ESOMEPRAZOLE) (CAPSULES) [Concomitant]
  3. DAILY MULTIVITAMIN-IRON (TABLETS) [Concomitant]
  4. DEXAMETHASONE (DEXAMETHASONE) (TABLETS) [Concomitant]

REACTIONS (1)
  - Rectal haemorrhage [None]
